FAERS Safety Report 21103822 (Version 1)
Quarter: 2022Q3

REPORT INFORMATION
  Report Type: Spontaneous
  Country: FR (occurrence: FR)
  Receive Date: 20220720
  Receipt Date: 20220720
  Transmission Date: 20221027
  Serious: Yes (Other)
  Sender: FDA-Public Use
  Company Number: FR-AFSSAPS-GR20221463

PATIENT
  Age: 21 Year
  Sex: Female

DRUGS (2)
  1. FENOFIBRATE [Suspect]
     Active Substance: FENOFIBRATE
     Indication: Intentional overdose
     Dosage: 10 DOSAGE FORM, DAILY, TABLET STRENGTH UNKNOWN
     Route: 065
     Dates: start: 20210810, end: 20210810
  2. LYRICA [Suspect]
     Active Substance: PREGABALIN
     Indication: Intentional overdose
     Dosage: 4 DOSAGE FORM, DAILY
     Route: 065
     Dates: start: 20210810, end: 20210810

REACTIONS (4)
  - Poisoning deliberate [Recovered/Resolved]
  - Headache [Recovered/Resolved]
  - Myalgia [Recovered/Resolved]
  - Somnolence [Recovered/Resolved]

NARRATIVE: CASE EVENT DATE: 20210810
